FAERS Safety Report 5361908-6 (Version None)
Quarter: 2007Q2

REPORT INFORMATION
  Report Type: 
  Country: None (occurrence: None)
  Receive Date: 20070612
  Receipt Date: 20070530
  Transmission Date: 20071010
  Serious: Yes (Life-Threatening)
  Sender: FDA-Public Use
  Company Number: 02100-JPN-07-0270

PATIENT
  Age: 79 Year
  Sex: Female

DRUGS (4)
  1. CILOSTAZOL [Suspect]
     Indication: CEREBRAL INFARCTION
     Dosage: 200 MG ORAL
     Route: 048
     Dates: start: 20070308, end: 20070527
  2. LOSARTAN POTASSIUM [Concomitant]
  3. TEPRENONE [Concomitant]
  4. AZELNIDIPINE [Concomitant]

REACTIONS (8)
  - ALANINE AMINOTRANSFERASE ABNORMAL [None]
  - ASPARTATE AMINOTRANSFERASE ABNORMAL [None]
  - GAIT DISTURBANCE [None]
  - GAMMA-GLUTAMYLTRANSFERASE ABNORMAL [None]
  - GRAND MAL CONVULSION [None]
  - HYPONATRAEMIA [None]
  - REPETITIVE SPEECH [None]
  - SUFFOCATION FEELING [None]
